FAERS Safety Report 18723273 (Version 1)
Quarter: 2021Q1

REPORT INFORMATION
  Report Type: Spontaneous
  Country: US (occurrence: US)
  Receive Date: 20210110
  Receipt Date: 20210110
  Transmission Date: 20210419
  Serious: Yes (Other)
  Sender: FDA-Public Use
  Company Number: None

PATIENT
  Age: 62 Year
  Sex: Female
  Weight: 72 kg

DRUGS (11)
  1. LOSARTAN. [Concomitant]
     Active Substance: LOSARTAN
  2. OXYCODONE 5MG [Concomitant]
     Active Substance: OXYCODONE
  3. TYLENOL PM [Concomitant]
     Active Substance: ACETAMINOPHEN\DIPHENHYDRAMINE
  4. TIZANIDINE. [Concomitant]
     Active Substance: TIZANIDINE
  5. IBUPROPHEN [Concomitant]
     Active Substance: IBUPROFEN
  6. BAMLANIVIMAB. [Suspect]
     Active Substance: BAMLANIVIMAB
     Indication: COVID-19
     Dosage: ?          QUANTITY:1 INJECTION(S);?
     Route: 042
     Dates: start: 20210105, end: 20210105
  7. LEVOTHYROXINE 50 MCG [Concomitant]
     Active Substance: LEVOTHYROXINE
  8. CLONAZAPAM [Concomitant]
     Active Substance: CLONAZEPAM
  9. SINUS MEDICATION [Concomitant]
     Active Substance: UNSPECIFIED INGREDIENT
  10. PANTOPRAZOLE SOD EC TB [Concomitant]
  11. TUMS [Concomitant]
     Active Substance: CALCIUM CARBONATE

REACTIONS (3)
  - Eating disorder [None]
  - Abdominal discomfort [None]
  - Drug monitoring procedure not performed [None]

NARRATIVE: CASE EVENT DATE: 20210105
